FAERS Safety Report 5166506-5 (Version None)
Quarter: 2006Q4

REPORT INFORMATION
  Report Type: 
  Country: None (occurrence: None)
  Receive Date: 20061207
  Receipt Date: 20061122
  Transmission Date: 20070319
  Serious: Yes (Hospitalization, Other)
  Sender: FDA-Public Use
  Company Number: JP-PURDUE-MAG_2006_0000497

PATIENT
  Age: 78 Year
  Sex: Female

DRUGS (4)
  1. OXYCODONE HCL [Suspect]
     Indication: NERVE INJURY
     Dosage: 10 MG, DAILY
     Route: 048
     Dates: start: 20061030, end: 20061113
  2. MORPHINE [Suspect]
     Indication: NERVE INJURY
     Dosage: 25 MG, DAILY
     Route: 048
     Dates: start: 20061106, end: 20061106
  3. DICLOFENAC SODIUM [Suspect]
     Indication: NERVE INJURY
     Dosage: 75 MG, DAILY
     Route: 048
     Dates: start: 20061030, end: 20061031
  4. MORPHINE SULFATE [Suspect]
     Indication: PAIN
     Dosage: 20 MG, DAILY
     Route: 065
     Dates: start: 20060925

REACTIONS (5)
  - GAIT DISTURBANCE [None]
  - HEPATIC FUNCTION ABNORMAL [None]
  - MALAISE [None]
  - NAUSEA [None]
  - PYREXIA [None]
